FAERS Safety Report 5276035-6 (Version None)
Quarter: 2007Q1

REPORT INFORMATION
  Report Type: 
  Country: None (occurrence: None)
  Receive Date: 20061213
  Receipt Date: 20050919
  Transmission Date: 20070707
  Serious: No
  Sender: FDA-Public Use
  Company Number: 2005UW13914

PATIENT
  Age: 6 Year
  Sex: Male

DRUGS (6)
  1. SEROQUEL [Suspect]
     Indication: ATTENTION DEFICIT/HYPERACTIVITY DISORDER
     Dosage: 700 MG QD PO
     Route: 048
     Dates: start: 20040301
  2. SEROQUEL [Suspect]
     Indication: OPPOSITIONAL DEFIANT DISORDER
     Dosage: 700 MG QD PO
     Route: 048
     Dates: start: 20040301
  3. SEROQUEL [Suspect]
     Indication: ATTENTION DEFICIT/HYPERACTIVITY DISORDER
     Dosage: TAPERED DOWN
  4. SEROQUEL [Suspect]
     Indication: OPPOSITIONAL DEFIANT DISORDER
     Dosage: TAPERED DOWN
  5. CONCERTA [Concomitant]
  6. ATENOLOL [Concomitant]

REACTIONS (8)
  - DRUG INEFFECTIVE [None]
  - FALL [None]
  - NEUROLEPTIC MALIGNANT SYNDROME [None]
  - TACHYCARDIA [None]
  - TARDIVE DYSKINESIA [None]
  - TIC [None]
  - TONGUE PARALYSIS [None]
  - TREMOR [None]
